FAERS Safety Report 16070502 (Version 1)
Quarter: 2019Q1

REPORT INFORMATION
  Report Type: Spontaneous
  Country: US (occurrence: US)
  Receive Date: 20190314
  Receipt Date: 20190314
  Transmission Date: 20190418
  Serious: No
  Sender: FDA-Public Use
  Company Number: US-DRREDDYS-USA/USA/19/0108440

PATIENT
  Sex: Female
  Weight: 63 kg

DRUGS (1)
  1. METOPROLOL SUCCINATE ER TABLETS 25 MG AND 50 MG [Suspect]
     Active Substance: METOPROLOL SUCCINATE
     Indication: ARRHYTHMIA
     Route: 048

REACTIONS (4)
  - Pain [Not Recovered/Not Resolved]
  - Blood iron abnormal [Unknown]
  - Tri-iodothyronine increased [Unknown]
  - Tinnitus [Not Recovered/Not Resolved]
